FAERS Safety Report 6887407-8 (Version None)
Quarter: 2010Q3

REPORT INFORMATION
  Report Type: 
  Country: None (occurrence: None)
  Receive Date: 20100730
  Receipt Date: 20100312
  Transmission Date: 20110219
  Serious: No
  Sender: FDA-Public Use
  Company Number: A0849990A

PATIENT
  Age: 57 Year
  Sex: Male

DRUGS (16)
  1. IMITREX [Suspect]
     Indication: MIGRAINE
     Dosage: 50MG AS REQUIRED
     Route: 048
  2. FLU SHOT [Concomitant]
  3. LYRICA [Concomitant]
  4. UROXATRAL [Concomitant]
  5. LUNESTA [Concomitant]
  6. DEPAKOTE [Concomitant]
  7. LITHIUM [Concomitant]
  8. LYRICA [Concomitant]
  9. ROBAXIN [Concomitant]
  10. LEVOXYL [Concomitant]
  11. MUCINEX [Concomitant]
  12. HYDROCODONE BITARTRATE [Concomitant]
  13. DARVOCET [Concomitant]
  14. LIDODERM [Concomitant]
  15. SUDAFED 12 HOUR [Concomitant]
  16. BENICAR [Concomitant]
     Dates: start: 20100311

REACTIONS (4)
  - EXPIRED DRUG ADMINISTERED [None]
  - MALAISE [None]
  - MEMORY IMPAIRMENT [None]
  - THERAPEUTIC RESPONSE DECREASED [None]
